FAERS Safety Report 21507907 (Version 1)
Quarter: 2022Q4

REPORT INFORMATION
  Report Type: Spontaneous
  Country: DK (occurrence: DK)
  Receive Date: 20221026
  Receipt Date: 20221026
  Transmission Date: 20230113
  Serious: Yes (Other)
  Sender: FDA-Public Use
  Company Number: None

PATIENT
  Age: 47 Year
  Sex: Female

DRUGS (4)
  1. PREDNISOLONE [Suspect]
     Active Substance: PREDNISOLONE
     Indication: Colitis ulcerative
     Dosage: DOSAGE: UNKNOWN, STRENGTH: UNKNOWN , THERAPY END DATE : NASK  ,ADDITIONAL INFORMATION : STOP DATE UN
     Route: 065
     Dates: start: 2011
  2. PREDNISOLONE [Suspect]
     Active Substance: PREDNISOLONE
     Dosage: DOSAGE: UNKNOWN , STRENGTH: UNKNOWN , THERAPY END DATE : NASK , ADDITIONAL INFORMATION : STOP DATE U
     Route: 065
     Dates: start: 20190710
  3. PREDNISOLONE [Suspect]
     Active Substance: PREDNISOLONE
     Dosage: DOSAGE: UNKNOWN , STRENGTH: UNKNOWN
     Route: 065
     Dates: start: 20190304, end: 2019
  4. PREDNISOLONE [Suspect]
     Active Substance: PREDNISOLONE
     Indication: Colitis ulcerative
     Dosage: DOSAGE: GRADUAL DECREASE FROM SEP2020 , STRENGTH: 5MG , TABLET (UNCOATED, ORAL) , UNIT DOSE : 5 MG ,
     Dates: start: 20200711

REACTIONS (1)
  - Addison^s disease [Unknown]

NARRATIVE: CASE EVENT DATE: 20201201
